FAERS Safety Report 5733569-5 (Version None)
Quarter: 2008Q2

REPORT INFORMATION
  Report Type: 
  Country: None (occurrence: None)
  Receive Date: 20080509
  Receipt Date: 20080228
  Transmission Date: 20081010
  Serious: Yes (Hospitalization)
  Sender: FDA-Public Use
  Company Number: FR-JNJFOC-20071003245

PATIENT
  Age: 67 Year
  Sex: Female

DRUGS (6)
  1. TAVANIC [Suspect]
     Indication: SINUSITIS
     Route: 065
  2. TAVANIC [Suspect]
     Indication: OTITIS MEDIA CHRONIC
     Route: 065
  3. LASILIX [Interacting]
     Indication: HYPERTENSION
     Route: 048
  4. LASILIX [Interacting]
     Route: 042
  5. RENITEC [Interacting]
     Indication: HYPERTENSION
     Route: 065
  6. NON-STEROIDAL ANTI-INFLAMMATORY DRUGS [Interacting]
     Indication: DRUG USE FOR UNKNOWN INDICATION
     Route: 065

REACTIONS (2)
  - DRUG INTERACTION [None]
  - RENAL FAILURE ACUTE [None]
